FAERS Safety Report 19916963 (Version 2)
Quarter: 2021Q4

REPORT INFORMATION
  Report Type: Report from Study
  Country: US (occurrence: US)
  Receive Date: 20211004
  Receipt Date: 20211113
  Transmission Date: 20220303
  Serious: Yes (Hospitalization, Other)
  Sender: FDA-Public Use
  Company Number: US-TAKEDA-2021TUS060344

PATIENT
  Age: 39 Year
  Sex: Female

DRUGS (25)
  1. TEDUGLUTIDE [Suspect]
     Active Substance: TEDUGLUTIDE
     Indication: Short-bowel syndrome
     Dosage: 5 MILLIGRAM, QD
     Route: 065
     Dates: start: 20191104, end: 20200205
  2. TEDUGLUTIDE [Suspect]
     Active Substance: TEDUGLUTIDE
     Indication: Short-bowel syndrome
     Dosage: 5 MILLIGRAM, QD
     Route: 065
     Dates: start: 20191104, end: 20200205
  3. TEDUGLUTIDE [Suspect]
     Active Substance: TEDUGLUTIDE
     Indication: Short-bowel syndrome
     Dosage: 5 MILLIGRAM, QD
     Route: 065
     Dates: start: 20191104, end: 20200205
  4. TEDUGLUTIDE [Suspect]
     Active Substance: TEDUGLUTIDE
     Indication: Short-bowel syndrome
     Dosage: 5 MILLIGRAM, QD
     Route: 065
     Dates: start: 20191104, end: 20200205
  5. DELTASONE [Concomitant]
     Active Substance: PREDNISONE
     Indication: Crohn^s disease
     Dosage: 20 MILLIGRAM, QD
     Route: 048
     Dates: start: 20210125, end: 20210207
  6. DELTASONE [Concomitant]
     Active Substance: PREDNISONE
     Dosage: 5 MILLIGRAM, QD
     Route: 048
     Dates: start: 20210208, end: 20210223
  7. STELARA [Concomitant]
     Active Substance: USTEKINUMAB
     Indication: Crohn^s disease
     Dosage: 1 MILLILITER, QD
     Route: 058
     Dates: start: 20210225, end: 20210225
  8. HUMIRA [Concomitant]
     Active Substance: ADALIMUMAB
     Indication: Crohn^s disease
     Dosage: 40 MILLIGRAM, 1/WEEK
     Route: 058
     Dates: start: 20200306
  9. VITAMIN D3 [Concomitant]
     Active Substance: CHOLECALCIFEROL
     Indication: Hypovitaminosis
     Dosage: 10000 INTERNATIONAL UNIT, QD
     Route: 048
     Dates: start: 20190919, end: 20201202
  10. VITAMIN A [Concomitant]
     Active Substance: VITAMIN A
     Indication: Hypovitaminosis
     Dosage: 1000 INTERNATIONAL UNIT, QD
     Route: 048
     Dates: start: 20190909, end: 20201202
  11. CEFEPIME [Concomitant]
     Active Substance: CEFEPIME HYDROCHLORIDE
     Indication: Device related sepsis
     Dosage: 2 GRAM, BID
     Route: 042
     Dates: start: 20201202, end: 20201211
  12. FLUCONAZOLE [Concomitant]
     Active Substance: FLUCONAZOLE
     Indication: Device related sepsis
     Dosage: 400 MILLIGRAM
     Route: 042
     Dates: start: 20201202, end: 20201214
  13. SODIUM CHLORIDE [Concomitant]
     Active Substance: SODIUM CHLORIDE
     Indication: Electrolyte imbalance
     Dosage: 200 MILLILITER
     Route: 042
     Dates: start: 20201202, end: 20201211
  14. INFLUENZA VIRUS VACCINE [Concomitant]
     Active Substance: INFLUENZA VIRUS VACCINE
     Indication: Antiviral prophylaxis
     Dosage: 0.5 MILLILITER, ONE TIME ONLY
     Route: 058
     Dates: start: 20201211, end: 20201211
  15. PANTOPRAZOLE [Concomitant]
     Active Substance: PANTOPRAZOLE
     Indication: Short-bowel syndrome
     Dosage: 40 MILLIGRAM, QD
     Route: 048
     Dates: start: 20201202, end: 20201211
  16. VANCOMYCIN [Concomitant]
     Active Substance: VANCOMYCIN
     Indication: Device related sepsis
     Dosage: 750 MILLIGRAM, QD
     Route: 042
     Dates: start: 20201202, end: 20201211
  17. DEXTROSE [Concomitant]
     Active Substance: DEXTROSE
     Indication: Prophylaxis against dehydration
     Dosage: 5 PERCENT
     Route: 042
     Dates: start: 20201202, end: 20201211
  18. VERSED [Concomitant]
     Active Substance: MIDAZOLAM HYDROCHLORIDE
     Indication: Anaesthesia
     Dosage: 6 MILLIGRAM, ONE TIME ONLY
     Route: 042
     Dates: start: 20201211, end: 20201211
  19. FENTANYL [Concomitant]
     Active Substance: FENTANYL
     Indication: Pain prophylaxis
     Dosage: 125 MICROGRAM, ONE TIME ONLY
     Route: 042
     Dates: start: 20201211, end: 20201211
  20. LINEZOLID [Concomitant]
     Active Substance: LINEZOLID
     Indication: Device related sepsis
     Dosage: 600 MILLIGRAM, Q12H
     Route: 042
     Dates: start: 20201211, end: 20201213
  21. IMODIUM [Concomitant]
     Active Substance: LOPERAMIDE HYDROCHLORIDE
     Indication: Short-bowel syndrome
     Dosage: 4 MILLIGRAM, QID
     Route: 048
     Dates: start: 20201211
  22. ONDANSETRON [Concomitant]
     Active Substance: ONDANSETRON
     Indication: Nausea
     Dosage: 4 MILLIGRAM, QD
     Route: 048
     Dates: start: 20210124, end: 20210124
  23. CALCIUM GLUCONATE [Concomitant]
     Active Substance: CALCIUM GLUCONATE
     Indication: Hypocalcaemia
     Dosage: 1 GRAM, ONE TIME ONLY
     Route: 048
     Dates: start: 20210124, end: 20210124
  24. POTASSIUM CHLORIDE [Concomitant]
     Active Substance: POTASSIUM CHLORIDE
     Indication: Electrolyte imbalance
     Dosage: 10 MILLIEQUIVALENT, ONE TIME ONLY
     Route: 048
     Dates: start: 20210124, end: 20210124
  25. POTASSIUM CHLORIDE [Concomitant]
     Active Substance: POTASSIUM CHLORIDE
     Indication: Hypokalaemia
     Dosage: 40 MILLIEQUIVALENT, ONE TIME ONLY
     Route: 048
     Dates: start: 20210124, end: 20210124

REACTIONS (1)
  - Vascular device infection [Recovered/Resolved]

NARRATIVE: CASE EVENT DATE: 20201201
